FAERS Safety Report 10476897 (Version 1)
Quarter: 2014Q3

REPORT INFORMATION
  Report Type: Report from Study
  Country: US (occurrence: US)
  Receive Date: 20140926
  Receipt Date: 20140926
  Transmission Date: 20150326
  Serious: Yes (Other)
  Sender: FDA-Public Use
  Company Number: US-ROCHE-1465088

PATIENT
  Sex: Female
  Weight: 30.4 kg

DRUGS (8)
  1. NUTROPIN AQ [Suspect]
     Active Substance: SOMATROPIN
     Dosage: 10 MG/2ML
     Route: 058
     Dates: start: 20140123
  2. NUTROPIN AQ [Suspect]
     Active Substance: SOMATROPIN
     Route: 058
  3. SYNTHROID [Concomitant]
     Active Substance: LEVOTHYROXINE SODIUM
     Route: 048
  4. HYDROCORTISONE SUCCINATE [Concomitant]
     Dosage: AS NEEDED
     Route: 030
  5. NUTROPIN AQ [Suspect]
     Active Substance: SOMATROPIN
     Indication: HYPOPITUITARISM
     Dosage: 10 MG/2ML SOLUTION
     Route: 058
  6. CETRIZINE [Concomitant]
     Active Substance: CETIRIZINE HYDROCHLORIDE
     Dosage: ONE TABLET BY MOUTH
     Route: 048
  7. CORTEF [Concomitant]
     Active Substance: HYDROCORTISONE
     Dosage: IN THE MORNING
     Route: 048
     Dates: start: 20131009, end: 20131101
  8. CORTEF [Concomitant]
     Active Substance: HYDROCORTISONE
     Dosage: IN THE NIGHT
     Route: 048
     Dates: start: 20131009, end: 20131101

REACTIONS (7)
  - Vomiting [Unknown]
  - Drug dose omission [Unknown]
  - Weight increased [Unknown]
  - Upper respiratory tract infection [Unknown]
  - Malaise [Unknown]
  - Growth retardation [Unknown]
  - VIIth nerve paralysis [Unknown]
